FAERS Safety Report 4653742-7 (Version None)
Quarter: 2005Q2

REPORT INFORMATION
  Report Type: 
  Country: None (occurrence: None)
  Receive Date: 20050504
  Receipt Date: 20050427
  Transmission Date: 20051028
  Serious: Yes (Death, Hospitalization, Other)
  Sender: FDA-Public Use
  Company Number: 2004-12-0985

PATIENT
  Age: 81 Year
  Sex: Female
  Weight: 70 kg

DRUGS (3)
  1. INTRON A [Suspect]
     Indication: RENAL CELL CARCINOMA STAGE UNSPECIFIED
     Dosage: 3XWK
     Dates: start: 20020702
  2. MULTI-VITAMINS [Concomitant]
  3. MAXAIR [Concomitant]

REACTIONS (38)
  - ABDOMINAL PAIN [None]
  - ABDOMINAL PAIN UPPER [None]
  - ABDOMINAL RIGIDITY [None]
  - AGITATION [None]
  - ANAEMIA [None]
  - ANOREXIA [None]
  - ANXIETY [None]
  - ASTHENIA [None]
  - BALANCE DISORDER [None]
  - CARDIAC FAILURE [None]
  - CEREBRAL INFARCTION [None]
  - CONFUSIONAL STATE [None]
  - DEHYDRATION [None]
  - DEPRESSION [None]
  - DIET REFUSAL [None]
  - DISORIENTATION [None]
  - DIZZINESS [None]
  - FACIAL PALSY [None]
  - FAILURE TO THRIVE [None]
  - FALL [None]
  - FATIGUE [None]
  - FEAR [None]
  - HYPOTENSION [None]
  - IRRITABILITY [None]
  - JAUNDICE [None]
  - LETHARGY [None]
  - LUNG DISORDER [None]
  - MALAISE [None]
  - MYOCARDIAL INFARCTION [None]
  - OEDEMA PERIPHERAL [None]
  - OVARIAN CYST [None]
  - OVERDOSE [None]
  - PAIN IN EXTREMITY [None]
  - PALPITATIONS [None]
  - RENAL FAILURE ACUTE [None]
  - RHONCHI [None]
  - SCREAMING [None]
  - WEIGHT DECREASED [None]
